FAERS Safety Report 23587235 (Version 3)
Quarter: 2024Q2

REPORT INFORMATION
  Report Type: Other
  Country: CA (occurrence: CA)
  Receive Date: 20240301
  Receipt Date: 20240618
  Transmission Date: 20240716
  Serious: Yes (Hospitalization)
  Sender: FDA-Public Use
  Company Number: CA-HEALTHCANVIG-E2B_06818910

PATIENT
  Sex: Male

DRUGS (21)
  1. HYDROMORPHONE HYDROCHLORIDE [Suspect]
     Active Substance: HYDROMORPHONE HYDROCHLORIDE
     Indication: Complications of transplanted heart
     Dosage: 2 MILLIGRAM
     Route: 065
  2. HYDROMORPHONE HYDROCHLORIDE [Suspect]
     Active Substance: HYDROMORPHONE HYDROCHLORIDE
     Indication: Angiopathy
     Dosage: 9 MILLIGRAM, 2 EVERY 1 DAY
     Route: 065
  3. HYDROMORPHONE HYDROCHLORIDE [Suspect]
     Active Substance: HYDROMORPHONE HYDROCHLORIDE
     Dosage: 9 MILLIGRAM, 1 EVERY 5 DAYS
     Route: 065
  4. AMLODIPINE [Suspect]
     Active Substance: AMLODIPINE BESYLATE
     Indication: Complications of transplanted heart
     Dosage: UNK
     Route: 065
  5. AMLODIPINE [Suspect]
     Active Substance: AMLODIPINE BESYLATE
     Indication: Angiopathy
     Dosage: 10 MILLIGRAM, 1 EVERY 1 DAYS
     Route: 065
  6. ASPIRIN [Suspect]
     Active Substance: ASPIRIN
     Indication: Complications of transplanted heart
     Dosage: UNK
     Route: 065
  7. ASPIRIN [Suspect]
     Active Substance: ASPIRIN
     Indication: Angiopathy
  8. CLOPIDOGREL [Suspect]
     Active Substance: CLOPIDOGREL BISULFATE
     Indication: Complications of transplanted heart
     Dosage: UNK
     Route: 065
  9. CLOPIDOGREL [Suspect]
     Active Substance: CLOPIDOGREL BISULFATE
     Indication: Angiopathy
  10. HYDRALAZINE [Suspect]
     Active Substance: HYDRALAZINE HYDROCHLORIDE
     Indication: Complications of transplanted heart
     Dosage: UNK
     Route: 065
  11. HYDRALAZINE [Suspect]
     Active Substance: HYDRALAZINE HYDROCHLORIDE
     Indication: Angiopathy
     Dosage: 100 MILLIGRAM, 3 EVERY 1 DAYS
     Route: 065
  12. HYDRALAZINE [Suspect]
     Active Substance: HYDRALAZINE HYDROCHLORIDE
     Dosage: 100 MILLIGRAM, 1 EVERY .33 DAYS
     Route: 065
  13. METOPROLOL [Suspect]
     Active Substance: METOPROLOL
     Indication: Complications of transplanted heart
     Dosage: UNK
     Route: 065
  14. METOPROLOL [Suspect]
     Active Substance: METOPROLOL
     Indication: Angiopathy
     Dosage: 100 MILLIGRAM, 3 EVERY 1 DAYS
     Route: 065
  15. METOPROLOL [Suspect]
     Active Substance: METOPROLOL
     Dosage: 100 MILLIGRAM, 1 EVERY .33 DAYS
     Route: 065
  16. PRAVASTATIN [Suspect]
     Active Substance: PRAVASTATIN
     Indication: Complications of transplanted heart
     Dosage: UNK
     Route: 065
  17. PRAVASTATIN [Suspect]
     Active Substance: PRAVASTATIN
     Indication: Angiopathy
     Dosage: 60 MILLIGRAM, 1 EVERY 1 DAYS
     Route: 065
  18. SIROLIMUS [Suspect]
     Active Substance: SIROLIMUS
     Indication: Complications of transplanted heart
     Dosage: UNK
     Route: 065
  19. SIROLIMUS [Suspect]
     Active Substance: SIROLIMUS
     Indication: Angiopathy
  20. TACROLIMUS [Suspect]
     Active Substance: TACROLIMUS
     Indication: Complications of transplanted heart
     Dosage: UNK
     Route: 065
  21. TACROLIMUS [Suspect]
     Active Substance: TACROLIMUS
     Indication: Angiopathy

REACTIONS (3)
  - Drug ineffective for unapproved indication [Unknown]
  - Off label use [Unknown]
  - Therapeutic product ineffective [Unknown]
